FAERS Safety Report 10402296 (Version 2)
Quarter: 2014Q3

REPORT INFORMATION
  Report Type: Spontaneous
  Country: CO (occurrence: CO)
  Receive Date: 20140822
  Receipt Date: 20140903
  Transmission Date: 20150326
  Serious: Yes (Hospitalization, Other)
  Sender: FDA-Public Use
  Company Number: PHHY2014CO102434

PATIENT
  Sex: Female

DRUGS (1)
  1. GILENYA [Suspect]
     Active Substance: FINGOLIMOD HYDROCHLORIDE
     Indication: MULTIPLE SCLEROSIS
     Dosage: 0.5 MG, QD
     Route: 048
     Dates: start: 20131001, end: 20140813

REACTIONS (16)
  - Hyperreflexia [Unknown]
  - Extensor plantar response [Unknown]
  - Leukopenia [Unknown]
  - Lymphopenia [Unknown]
  - Multiple sclerosis relapse [Unknown]
  - Optic disc disorder [Unknown]
  - Gait disturbance [Unknown]
  - Hypochromic anaemia [Unknown]
  - Central nervous system lesion [Unknown]
  - Depression [Unknown]
  - Haemoglobin decreased [Unknown]
  - Haematocrit decreased [Unknown]
  - Cognitive disorder [Unknown]
  - Ataxia [Unknown]
  - Cerebellar syndrome [Unknown]
  - Intention tremor [Unknown]
